FAERS Safety Report 6335491-2 (Version None)
Quarter: 2009Q3

REPORT INFORMATION
  Report Type: 
  Country: None (occurrence: None)
  Receive Date: 20090831
  Receipt Date: 20090820
  Transmission Date: 20100115
  Serious: Yes (Other)
  Sender: FDA-Public Use
  Company Number: CH-ASTRAZENECA-2009SE09872

PATIENT
  Age: 91 Year
  Sex: Female

DRUGS (10)
  1. NEXIUM [Suspect]
     Route: 048
  2. DETRUSITOL [Suspect]
     Route: 048
     Dates: start: 20080101
  3. TEMESTA [Suspect]
     Route: 048
  4. NORVASC [Suspect]
     Indication: ESSENTIAL HYPERTENSION
  5. VOLTAREN [Concomitant]
     Dates: end: 20090119
  6. DAFALGAN [Concomitant]
     Dates: start: 20090119
  7. COZAAR [Concomitant]
     Dates: start: 20090119
  8. SCHERIPROCT [Concomitant]
  9. ASPIRIN [Concomitant]
  10. LAXOBERON [Concomitant]
     Dates: start: 20090119

REACTIONS (1)
  - INAPPROPRIATE ANTIDIURETIC HORMONE SECRETION [None]
